FAERS Safety Report 9179902 (Version 1)
Quarter: 2012Q4

REPORT INFORMATION
  Report Type: 
  Country: CH (occurrence: CH)
  Receive Date: 20121029
  Receipt Date: 20121029
  Transmission Date: 20130627
  Serious: Yes (Life-Threatening, Hospitalization, Other)
  Sender: FDA-Public Use
  Company Number: CH-ROCHE-1147388

PATIENT
  Age: 61 Year
  Sex: Female

DRUGS (9)
  1. MABTHERA [Suspect]
     Indication: DIFFUSE LARGE B-CELL LYMPHOMA
     Route: 042
     Dates: start: 20080122, end: 20080401
  2. MABTHERA [Suspect]
     Route: 042
     Dates: start: 200807, end: 201007
  3. CYCLOPHOSPHAMIDE [Suspect]
     Indication: DIFFUSE LARGE B-CELL LYMPHOMA
     Route: 065
     Dates: start: 20080122, end: 20080401
  4. DOXORUBICIN [Suspect]
     Indication: DIFFUSE LARGE B-CELL LYMPHOMA
     Route: 065
     Dates: start: 20080122, end: 20080401
  5. VINCRISTINE [Suspect]
     Indication: DIFFUSE LARGE B-CELL LYMPHOMA
     Route: 065
     Dates: start: 20080122, end: 20080401
  6. PREDNISONE [Suspect]
     Indication: DIFFUSE LARGE B-CELL LYMPHOMA
     Route: 065
     Dates: start: 20080122, end: 20080401
  7. TORASEMIDE [Concomitant]
     Route: 065
  8. CO-DIOVANE [Concomitant]
     Dosage: 160/12.5 mg
     Route: 065
  9. MAG 2 [Concomitant]
     Route: 065

REACTIONS (7)
  - Cardiac failure [Unknown]
  - Cardiomegaly [Unknown]
  - Pleural effusion [Unknown]
  - Bronchitis [Unknown]
  - Dyspnoea [Unknown]
  - Weight increased [Unknown]
  - Oedema peripheral [Unknown]
